FAERS Safety Report 6101622-2 (Version None)
Quarter: 2009Q1

REPORT INFORMATION
  Report Type: 
  Country: None (occurrence: None)
  Receive Date: 20090227
  Receipt Date: 20090220
  Transmission Date: 20090719
  Serious: Yes (Other)
  Sender: FDA-Public Use
  Company Number: 2009SP004131

PATIENT
  Age: 43 Year
  Sex: Female

DRUGS (5)
  1. MIRALAX [Suspect]
     Dosage: QD; PO; 17 GM; QD; PO
     Route: 048
     Dates: start: 20090215, end: 20090218
  2. LEVOTHROID [Concomitant]
  3. TOPAMAX [Concomitant]
  4. BUSPAR [Concomitant]
  5. FENTANYL TRANSDERMAL SYSTEM [Concomitant]

REACTIONS (3)
  - GENERALISED OEDEMA [None]
  - IMPAIRED DRIVING ABILITY [None]
  - PAINFUL RESPIRATION [None]
